FAERS Safety Report 5780645-7 (Version None)
Quarter: 2008Q2

REPORT INFORMATION
  Report Type: 
  Country: None (occurrence: None)
  Receive Date: 20080620
  Receipt Date: 20080605
  Transmission Date: 20081010
  Serious: No
  Sender: FDA-Public Use
  Company Number: US-BOEHRINGER INGELHEIM GMBH, GERMANY-2008-BP-08780BP

PATIENT
  Age: 37 Year
  Sex: Female

DRUGS (4)
  1. MICARDIS HCT [Suspect]
     Dates: start: 20080531, end: 20080604
  2. ASTELIN [Concomitant]
  3. PEPCID AC [Concomitant]
     Indication: DYSPEPSIA
  4. ALPRAZOLAM [Concomitant]

REACTIONS (5)
  - BLOOD POTASSIUM DECREASED [None]
  - CHEST PAIN [None]
  - HEADACHE [None]
  - HEART RATE INCREASED [None]
  - PAIN IN EXTREMITY [None]
